FAERS Safety Report 11977116 (Version 2)
Quarter: 2016Q2

REPORT INFORMATION
  Report Type: Spontaneous
  Country: FR (occurrence: FR)
  Receive Date: 20160129
  Receipt Date: 20160519
  Transmission Date: 20160815
  Serious: Yes (Death, Life-Threatening, Other)
  Sender: FDA-Public Use
  Company Number: FR-PFIZER INC-2016049462

PATIENT
  Age: 82 Year
  Sex: Female

DRUGS (13)
  1. PREDNISONE. [Interacting]
     Active Substance: PREDNISONE
     Dosage: 2.5 MG, DAILY
     Route: 065
  2. BISOPROLOL [Concomitant]
     Active Substance: BISOPROLOL
     Dosage: UNK
  3. TRINITRINE [Concomitant]
     Active Substance: NITROGLYCERIN
     Dosage: UNK
  4. LASILIX [Concomitant]
     Active Substance: FUROSEMIDE
     Dosage: UNK
  5. CORDARONE [Suspect]
     Active Substance: AMIODARONE HYDROCHLORIDE
     Dosage: 200 MG, DAILY
     Route: 048
  6. NOVOMIX [Concomitant]
     Active Substance: INSULIN ASPART
     Dosage: UNK
  7. ESOMEPRAZOLE [Concomitant]
     Active Substance: ESOMEPRAZOLE
     Dosage: UNK
  8. INNOHEP [Suspect]
     Active Substance: TINZAPARIN SODIUM
     Indication: PULMONARY EMBOLISM
     Dosage: 0.7 ML, DAILY
     Route: 058
     Dates: start: 20150918, end: 20150919
  9. URAPIDIL [Concomitant]
     Active Substance: URAPIDIL
     Dosage: UNK
  10. UMULINE [Concomitant]
     Active Substance: INSULIN HUMAN
     Dosage: UNK
  11. TARDYFERON [Concomitant]
     Active Substance: FERROUS SULFATE\FOLIC ACID
     Dosage: UNK
  12. PREVISCAN [Suspect]
     Active Substance: FLUINDIONE
     Dosage: 20 MG, DAILY
     Route: 048
  13. SERETIDE [Concomitant]
     Active Substance: FLUTICASONE PROPIONATE\SALMETEROL XINAFOATE
     Dosage: UNK

REACTIONS (7)
  - Shock haemorrhagic [Fatal]
  - Fall [Unknown]
  - Drug interaction [Fatal]
  - Acute respiratory distress syndrome [Unknown]
  - Traumatic haemothorax [Unknown]
  - Muscle haemorrhage [Fatal]
  - Acute kidney injury [Recovered/Resolved]

NARRATIVE: CASE EVENT DATE: 20150918
